FAERS Safety Report 8805620 (Version 2)
Quarter: 2012Q4

REPORT INFORMATION
  Report Type: Report from Study
  Country: US (occurrence: US)
  Receive Date: 20120924
  Receipt Date: 20121009
  Transmission Date: 20130627
  Serious: Yes (Death, Hospitalization)
  Sender: FDA-Public Use
  Company Number: US-ACTELION-A-US2012-71626

PATIENT
  Age: 71 Year
  Sex: Female

DRUGS (3)
  1. TRACLEER [Suspect]
     Indication: PULMONARY ARTERIAL HYPERTENSION
     Route: 048
  2. SILDENAFIL [Concomitant]
  3. PRADAXA [Concomitant]

REACTIONS (13)
  - Respiratory arrest [Fatal]
  - Septic shock [Unknown]
  - Renal failure acute [Unknown]
  - Hyperkalaemia [Unknown]
  - Pneumonia [Unknown]
  - Acute respiratory failure [Unknown]
  - Bradycardia [Unknown]
  - Hypotension [Unknown]
  - Dyspnoea [Fatal]
  - Abdominal distension [Unknown]
  - Pallor [Unknown]
  - Cyanosis central [Unknown]
  - Lividity [Unknown]
